FAERS Safety Report 9486276 (Version 1)
Quarter: 2013Q3

REPORT INFORMATION
  Report Type: Spontaneous
  Country: US (occurrence: US)
  Receive Date: 20130829
  Receipt Date: 20130829
  Transmission Date: 20140515
  Serious: Yes (Disabling)
  Sender: FDA-Public Use
  Company Number: US-009507513-1308USA008687

PATIENT
  Age: 50 Year
  Sex: Female

DRUGS (4)
  1. CELESTONE SOLUSPAN [Suspect]
     Indication: NECK PAIN
     Dosage: DOSE: 3.0 MG/ML, ONCE, ROUTE: INJECTION
     Route: 050
     Dates: start: 20130712, end: 20130712
  2. CELESTONE SOLUSPAN [Suspect]
     Indication: INTERVERTEBRAL DISC PROTRUSION
     Dosage: DOSE 3.0 MG/ML, ONCE, ROUTE: INJECTION
     Route: 050
     Dates: start: 20130723, end: 20130723
  3. DIFLUCAN [Concomitant]
  4. FIORICET [Concomitant]

REACTIONS (14)
  - Bedridden [Not Recovered/Not Resolved]
  - Pain [Not Recovered/Not Resolved]
  - Neck pain [Not Recovered/Not Resolved]
  - Urethral pain [Not Recovered/Not Resolved]
  - Rash [Not Recovered/Not Resolved]
  - Vision blurred [Not Recovered/Not Resolved]
  - Hypoaesthesia [Not Recovered/Not Resolved]
  - Eye irritation [Not Recovered/Not Resolved]
  - Eye pruritus [Not Recovered/Not Resolved]
  - Burning sensation [Not Recovered/Not Resolved]
  - Weight decreased [Not Recovered/Not Resolved]
  - Feeling abnormal [Not Recovered/Not Resolved]
  - Burning sensation [Not Recovered/Not Resolved]
  - Pruritus [Not Recovered/Not Resolved]
